FAERS Safety Report 19845823 (Version 1)
Quarter: 2021Q3

REPORT INFORMATION
  Report Type: Spontaneous
  Country: GB (occurrence: GB)
  Receive Date: 20210917
  Receipt Date: 20210917
  Transmission Date: 20211014
  Serious: Yes (Hospitalization, Other)
  Sender: FDA-Public Use
  Company Number: GB-ASTRAZENECA-2021A708082

PATIENT
  Age: 11305 Day
  Sex: Female

DRUGS (18)
  1. FOSTAIR [Concomitant]
     Active Substance: BECLOMETHASONE\FORMOTEROL
  2. OXYCODONE [Concomitant]
     Active Substance: OXYCODONE
  3. ZOPICLONE [Concomitant]
     Active Substance: ZOPICLONE
  4. SERTRALINE [Concomitant]
     Active Substance: SERTRALINE HYDROCHLORIDE
  5. LANSOPRAZOLE. [Concomitant]
     Active Substance: LANSOPRAZOLE
  6. LEVOTHYROXINE. [Concomitant]
     Active Substance: LEVOTHYROXINE
  7. FASENRA [Suspect]
     Active Substance: BENRALIZUMAB
     Route: 058
  8. CARBOCYSTEINE [Concomitant]
     Active Substance: CARBOCYSTEINE
  9. ADCAL D3 [Concomitant]
     Active Substance: CALCIUM CARBONATE\CHOLECALCIFEROL
  10. CLOBESTASONE [Concomitant]
  11. LEVOTHYROXINE. [Concomitant]
     Active Substance: LEVOTHYROXINE
  12. SALBUTAMOL [Concomitant]
     Active Substance: ALBUTEROL
  13. PREDNISOLONE. [Concomitant]
     Active Substance: PREDNISOLONE
  14. DIMETHYL FUMERATE [Concomitant]
  15. FOLIC ACID. [Concomitant]
     Active Substance: FOLIC ACID
  16. MONTELUKAST [Concomitant]
     Active Substance: MONTELUKAST SODIUM
  17. LORAZEPAM. [Concomitant]
     Active Substance: LORAZEPAM
  18. TIOTROPIUM [Concomitant]
     Active Substance: TIOTROPIUM

REACTIONS (6)
  - Anaphylactic reaction [Not Recovered/Not Resolved]
  - Angioedema [Unknown]
  - Dyspnoea [Unknown]
  - Wheezing [Unknown]
  - Rash [Unknown]
  - Bronchospasm [Unknown]

NARRATIVE: CASE EVENT DATE: 20210827
